FAERS Safety Report 9846264 (Version 1)
Quarter: 2014Q1

REPORT INFORMATION
  Report Type: Spontaneous
  Country: US (occurrence: None)
  Receive Date: 20140122
  Receipt Date: 20140122
  Transmission Date: 20141002
  Serious: Yes (Hospitalization)
  Sender: FDA-Public Use
  Company Number: FURO20140001

PATIENT
  Age: 17 Year
  Sex: Female
  Weight: 38.7 kg

DRUGS (3)
  1. FUROSEMIDE [Suspect]
     Indication: PRODUCT USED FOR UNKNOWN INDICATION
     Route: 048
  2. TOBRAMYCIN [Suspect]
     Indication: PRODUCT USED FOR UNKNOWN INDICATION
  3. TACROLIMUS [Suspect]
     Indication: PROPHYLAXIS AGAINST TRANSPLANT REJECTION
     Route: 048

REACTIONS (8)
  - Renal failure acute [None]
  - Renal tubular necrosis [None]
  - Continuous haemodiafiltration [None]
  - Drug interaction [None]
  - Transplant dysfunction [None]
  - Lung transplant [None]
  - Haemodynamic instability [None]
  - Post procedural complication [None]
